FAERS Safety Report 9103879 (Version 2)
Quarter: 2013Q1

REPORT INFORMATION
  Report Type: Spontaneous
  Country: US (occurrence: US)
  Receive Date: 20130219
  Receipt Date: 20130329
  Transmission Date: 20140127
  Serious: No
  Sender: FDA-Public Use
  Company Number: US-PFIZER INC-2013059446

PATIENT
  Sex: Male

DRUGS (1)
  1. VANCOMYCIN HCL [Suspect]
     Dosage: 10 GRAM VIALS, AT 340  EVERY 12H
     Route: 042
     Dates: start: 20130129, end: 20130129

REACTIONS (4)
  - Product colour issue [Unknown]
  - Product reconstitution issue [Unknown]
  - Product solubility abnormal [Unknown]
  - Red man syndrome [Recovered/Resolved]
